FAERS Safety Report 15337716 (Version 2)
Quarter: 2019Q1

REPORT INFORMATION
  Report Type: Spontaneous
  Country: US (occurrence: US)
  Receive Date: 20180831
  Receipt Date: 20190219
  Transmission Date: 20190417
  Serious: Yes (Other)
  Sender: FDA-Public Use
  Company Number: US-PFIZER INC-2018349180

PATIENT
  Age: 82 Year
  Sex: Male

DRUGS (16)
  1. CYCLOBENZAPRINE. [Concomitant]
     Active Substance: CYCLOBENZAPRINE
     Indication: MUSCLE SPASMS
     Dosage: 30 MG, DAILY (10 MG, 3 IN 1 D)
     Route: 048
  2. FML FORTE [Concomitant]
     Active Substance: FLUOROMETHOLONE
     Dosage: 4 GTT, DAILY (2 DROPS (BOTH EYES) (1 GTT, 2 IN 1 D))
     Route: 047
  3. POMALYST [Suspect]
     Active Substance: POMALIDOMIDE
     Dosage: 4 MG, CYCLIC (4 MG, 21 IN 28 D)
     Route: 048
     Dates: start: 20180123
  4. BUMETANIDE. [Concomitant]
     Active Substance: BUMETANIDE
     Dosage: UNK
  5. POMALYST [Suspect]
     Active Substance: POMALIDOMIDE
     Dosage: 4 MG, CYCLIC (4 MG, 21 IN 28 D)
     Route: 048
     Dates: start: 20170913
  6. DEXAMETHASONE. [Concomitant]
     Active Substance: DEXAMETHASONE
     Dosage: 40 MG, WEEKLY (40 MG, 1 IN 1 WK)
     Route: 048
     Dates: start: 20170913
  7. ARANESP [Concomitant]
     Active Substance: DARBEPOETIN ALFA
     Dosage: UNK, AS NEEDED (PRN)
     Route: 058
  8. VITAMIN D [ERGOCALCIFEROL] [Concomitant]
     Active Substance: ERGOCALCIFEROL
     Dosage: 1000 IU, DAILY (1 IN 1 D)
     Route: 048
  9. METROGEL [Concomitant]
     Active Substance: METRONIDAZOLE
     Dosage: UNK UNK, 2X/DAY (1 APPLICATION TWICE DAILY (2 IN 1 D))
     Route: 061
  10. LIPITOR [Suspect]
     Active Substance: ATORVASTATIN CALCIUM
     Dosage: UNK
  11. AMLODIPINE [Concomitant]
     Active Substance: AMLODIPINE BESYLATE
     Dosage: 2.5 MG, DAILY (2.5 MG, 1 IN 1 D)
     Route: 048
  12. VALACYCLOVIR [Concomitant]
     Active Substance: VALACYCLOVIR HYDROCHLORIDE
     Dosage: 500 MG, DAILY (500 MG, 1 IN 1 D)
     Route: 048
  13. ASPIRIN. [Concomitant]
     Active Substance: ASPIRIN
     Dosage: 81 MG, DAILY (81 MG, 1 IN 1 D)
     Route: 048
  14. CARFILZOMIB [Concomitant]
     Active Substance: CARFILZOMIB
     Dosage: 1 DF, CYCLIC (1 IN 3 WK)
     Route: 042
     Dates: start: 20170913
  15. KYPROLIS [Concomitant]
     Active Substance: CARFILZOMIB
     Dosage: UNK
  16. POMALYST [Suspect]
     Active Substance: POMALIDOMIDE
     Indication: PLASMA CELL MYELOMA
     Dosage: 4 MG, CYCLIC (EVERY 21 DAYS AND 7 DAYS OFF)(4 MG, 21 IN 28 D)
     Route: 048
     Dates: start: 20170715

REACTIONS (4)
  - Oedema peripheral [Not Recovered/Not Resolved]
  - Neuropathy peripheral [Not Recovered/Not Resolved]
  - Muscular weakness [Recovered/Resolved]
  - Oedema peripheral [Unknown]

NARRATIVE: CASE EVENT DATE: 20170927
